FAERS Safety Report 12916491 (Version 3)
Quarter: 2020Q3

REPORT INFORMATION
  Report Type: Report from Study
  Country: JP (occurrence: JP)
  Receive Date: 20161107
  Receipt Date: 20170126
  Transmission Date: 20201105
  Serious: Yes (Hospitalization, Other)
  Sender: FDA-Public Use
  Company Number: JP-ROCHE-1848891

PATIENT
  Age: 53 Year
  Sex: Female
  Weight: 69 kg

DRUGS (4)
  1. ALECTINIB. [Suspect]
     Active Substance: ALECTINIB
     Indication: LUNG ADENOCARCINOMA
     Route: 048
     Dates: start: 20150106
  2. DECADRON [Concomitant]
     Active Substance: DEXAMETHASONE
     Indication: LUNG ADENOCARCINOMA
     Dosage: THE FRACTIONATION DOSE FREQUENCY IS UNCERTAIN.
     Route: 048
     Dates: start: 20160120
  3. DECADRON [Concomitant]
     Active Substance: DEXAMETHASONE
     Indication: LUNG ADENOCARCINOMA
     Dosage: THE FRACTIONATION DOSE FREQUENCY IS UNCERTAIN.
     Route: 048
     Dates: start: 20150829, end: 20160119
  4. BEVACIZUMAB. [Suspect]
     Active Substance: BEVACIZUMAB
     Indication: NECROSIS
     Dosage: MOST RECENT DOSE: 28/AUG/2015
     Route: 041
     Dates: start: 20150731

REACTIONS (11)
  - Peripheral embolism [Recovered/Resolved]
  - Pulmonary embolism [Recovered/Resolved]
  - Platelet count decreased [Recovered/Resolved]
  - Aspartate aminotransferase increased [Recovered/Resolved]
  - Hemiparesis [Unknown]
  - Blood creatinine increased [Not Recovered/Not Resolved]
  - Blood bilirubin increased [Not Recovered/Not Resolved]
  - Constipation [Not Recovered/Not Resolved]
  - White blood cell count decreased [Recovered/Resolved]
  - Dysgeusia [Recovered/Resolved]
  - Off label use [Unknown]

NARRATIVE: CASE EVENT DATE: 20150108
